FAERS Safety Report 8429874-4 (Version None)
Quarter: 2012Q2

REPORT INFORMATION
  Report Type: 
  Country: None (occurrence: None)
  Receive Date: 20120612
  Receipt Date: 20120530
  Transmission Date: 20120825
  Serious: No
  Sender: FDA-Public Use
  Company Number: US-ASTRAZENECA-2012SE35658

PATIENT
  Age: 83 Year
  Sex: Male
  Weight: 70.3 kg

DRUGS (4)
  1. CRESTOR [Suspect]
     Indication: HYPERTENSION
     Route: 048
     Dates: start: 20100101
  2. STATINS [Concomitant]
  3. CRESTOR [Suspect]
     Indication: BLOOD CHOLESTEROL
     Route: 048
     Dates: start: 20100101
  4. LIPITOR [Concomitant]

REACTIONS (1)
  - JOINT STIFFNESS [None]
